FAERS Safety Report 22333169 (Version 2)
Quarter: 2023Q2

REPORT INFORMATION
  Report Type: Spontaneous
  Country: JP (occurrence: JP)
  Receive Date: 20230517
  Receipt Date: 20230602
  Transmission Date: 20230721
  Serious: Yes (Other)
  Sender: FDA-Public Use
  Company Number: JP-ABBVIE-4770303

PATIENT

DRUGS (1)
  1. RINVOQ [Suspect]
     Active Substance: UPADACITINIB
     Indication: Rheumatoid arthritis
     Dosage: 7.5 MG
     Route: 048

REACTIONS (11)
  - COVID-19 [Unknown]
  - Therapeutic product effect incomplete [Unknown]
  - Urinary tract infection [Unknown]
  - Unevaluable event [Unknown]
  - Oral herpes [Unknown]
  - Atypical femur fracture [Unknown]
  - Herpes zoster [Unknown]
  - COVID-19 [Unknown]
  - Coronary artery disease [Unknown]
  - Upper respiratory tract inflammation [Unknown]
  - Sinus node dysfunction [Unknown]
